FAERS Safety Report 23269470 (Version 1)
Quarter: 2023Q4

REPORT INFORMATION
  Report Type: Spontaneous
  Country: US (occurrence: US)
  Receive Date: 20231207
  Receipt Date: 20231207
  Transmission Date: 20240109
  Serious: No
  Sender: FDA-Public Use
  Company Number: US-drreddys-SPO/USA/23/0187107

PATIENT
  Age: 40 Year
  Sex: Female

DRUGS (1)
  1. ZENATANE [Suspect]
     Active Substance: ISOTRETINOIN
     Dosage: CAPSULES 40MG - DRL BOX OF 30 OF 30 (3X10)

REACTIONS (1)
  - Arthralgia [Unknown]
